FAERS Safety Report 11282254 (Version 2)
Quarter: 2018Q2

REPORT INFORMATION
  Report Type: Report from Study
  Country: SG (occurrence: SG)
  Receive Date: 20150720
  Receipt Date: 20180423
  Transmission Date: 20180711
  Serious: Yes (Other)
  Sender: FDA-Public Use
  Company Number: SG-ROCHE-1609790

PATIENT

DRUGS (4)
  1. TRASTUZUMAB. [Suspect]
     Active Substance: TRASTUZUMAB
     Dosage: ON DAY 1 OF SUBSEQUENT CYCLES
     Route: 042
  2. CISPLATIN. [Suspect]
     Active Substance: CISPLATIN
     Indication: GASTRIC CANCER
     Dosage: ON DAY 1 OF EACH CYCLE AFTER TRASTUZUMAB.
     Route: 042
  3. TRASTUZUMAB. [Suspect]
     Active Substance: TRASTUZUMAB
     Indication: GASTRIC CANCER
     Dosage: LOADING DOSE
     Route: 042
  4. TS-1 [Suspect]
     Active Substance: GIMERACIL\OTERACIL\TEGAFUR
     Indication: GASTRIC CANCER
     Dosage: DOSING BASED ON BSA FOR 14 DAYS
     Route: 048

REACTIONS (7)
  - Hypoalbuminaemia [Unknown]
  - Thrombocytopenia [Unknown]
  - Ejection fraction decreased [Unknown]
  - Leukopenia [Unknown]
  - Febrile neutropenia [Unknown]
  - Abdominal distension [Unknown]
  - Hyperbilirubinaemia [Unknown]
